FAERS Safety Report 13615890 (Version 1)
Quarter: 2017Q2

REPORT INFORMATION
  Report Type: Spontaneous
  Country: AU (occurrence: AU)
  Receive Date: 20170601
  Receipt Date: 20170601
  Transmission Date: 20170830
  Serious: Yes (Death, Hospitalization, Other)
  Sender: FDA-Public Use
  Company Number: AU-IPCA LABORATORIES LIMITED-IPC201703-000238

PATIENT
  Age: 75 Year
  Sex: Male

DRUGS (1)
  1. METFORMIN HYDROCHLORIDE TABLETS, USP [Suspect]
     Active Substance: METFORMIN HYDROCHLORIDE
     Indication: TYPE 2 DIABETES MELLITUS
     Dosage: 2000,MG,ONE DAY

REACTIONS (3)
  - Multiple organ dysfunction syndrome [Fatal]
  - Intestinal ischaemia [Fatal]
  - Lactic acidosis [Unknown]
